FAERS Safety Report 6433430-7 (Version None)
Quarter: 2009Q4

REPORT INFORMATION
  Report Type: 
  Country: None (occurrence: None)
  Receive Date: 20091106
  Receipt Date: 20091106
  Transmission Date: 20100525
  Serious: Yes (Hospitalization, Disabling)
  Sender: FDA-Public Use
  Company Number: None

PATIENT
  Age: 61 Year
  Sex: Female
  Weight: 79.3795 kg

DRUGS (8)
  1. ALENDRONATE SODIUM [Suspect]
     Indication: OSTEOPENIA
     Dosage: 70 MG WEEKLY PO
     Route: 048
     Dates: start: 20011201, end: 20090920
  2. MULTI-VITAMIN [Concomitant]
  3. MODROXYPROGESTERONE [Concomitant]
  4. ESTRADIOL [Concomitant]
  5. TRIAMTERENE AND HYDROCHLOROTHIAZIDE [Concomitant]
  6. DICLOFENAC [Concomitant]
  7. ASPIRIN [Concomitant]
  8. SINGULAIR [Concomitant]

REACTIONS (3)
  - FEMUR FRACTURE [None]
  - MUSCLE SPASMS [None]
  - PATHOLOGICAL FRACTURE [None]
